FAERS Safety Report 8827265 (Version 1)
Quarter: 2012Q4

REPORT INFORMATION
  Report Type: 
  Country: US (occurrence: US)
  Receive Date: 20121008
  Receipt Date: 20121008
  Transmission Date: 20130627
  Serious: No
  Sender: FDA-Public Use
  Company Number: US-009507513-1210USA002228

PATIENT
  Age: 21 Year
  Sex: Female
  Weight: 78.5 kg

DRUGS (1)
  1. NEXPLANON [Suspect]
     Indication: CONTRACEPTION
     Dosage: UNK
     Dates: start: 20120914

REACTIONS (3)
  - Device expulsion [Not Recovered/Not Resolved]
  - No adverse event [Unknown]
  - Device difficult to use [Unknown]
